FAERS Safety Report 4397586-2 (Version None)
Quarter: 2004Q3

REPORT INFORMATION
  Report Type: 
  Country: None (occurrence: None)
  Receive Date: 20040712
  Receipt Date: 20040701
  Transmission Date: 20050211
  Serious: Yes (Life-Threatening, Hospitalization)
  Sender: FDA-Public Use
  Company Number: 2004-01-1491

PATIENT
  Age: 45 Year
  Sex: Male
  Weight: 98 kg

DRUGS (1)
  1. CELESTONE SOLUSPAN [Suspect]
     Dosage: INTRA-ARTICULAR
     Route: 014

REACTIONS (1)
  - ANAPHYLACTIC SHOCK [None]
